FAERS Safety Report 11943854 (Version 1)
Quarter: 2016Q1

REPORT INFORMATION
  Report Type: Spontaneous
  Country: US (occurrence: US)
  Receive Date: 20160125
  Receipt Date: 20160125
  Transmission Date: 20160526
  Serious: No
  Sender: FDA-Public Use
  Company Number: US-UNITED THERAPEUTICS-UNT-2015-013747

PATIENT
  Age: 36 Year
  Sex: Female
  Weight: 65.76 kg

DRUGS (2)
  1. REMODULIN [Suspect]
     Active Substance: TREPROSTINIL
     Indication: PULMONARY ARTERIAL HYPERTENSION
     Dosage: 0.076 ?G/KG/MIN, CONTINUING
     Route: 041
     Dates: start: 20150316
  2. COUMADIN [Concomitant]
     Active Substance: WARFARIN SODIUM
     Indication: PRODUCT USED FOR UNKNOWN INDICATION

REACTIONS (8)
  - Decreased appetite [Unknown]
  - Dyspepsia [Unknown]
  - Diarrhoea [Not Recovered/Not Resolved]
  - Neck pain [Unknown]
  - Injection site erythema [Unknown]
  - Injection site pain [Unknown]
  - Abdominal distension [Unknown]
  - Pyrexia [Unknown]

NARRATIVE: CASE EVENT DATE: 201510
